APPROVED DRUG PRODUCT: DASATINIB
Active Ingredient: DASATINIB
Strength: 20MG
Dosage Form/Route: TABLET;ORAL
Application: A202103 | Product #001 | TE Code: AB
Applicant: APOTEX INC
Approved: Jun 10, 2016 | RLD: No | RS: No | Type: RX